FAERS Safety Report 16243687 (Version 1)
Quarter: 2019Q2

REPORT INFORMATION
  Report Type: Spontaneous
  Country: US (occurrence: US)
  Receive Date: 20190426
  Receipt Date: 20190426
  Transmission Date: 20190711
  Serious: Yes (Hospitalization, Other)
  Sender: FDA-Public Use
  Company Number: US-PFIZER INC-2016540524

PATIENT
  Age: 71 Year
  Sex: Female

DRUGS (18)
  1. LOSARTAN. [Concomitant]
     Active Substance: LOSARTAN
     Dosage: 100 MG, DAILY
     Route: 048
  2. METFORMIN [Concomitant]
     Active Substance: METFORMIN HYDROCHLORIDE
     Dosage: 1000 MG, 2X/DAY
     Route: 048
  3. ONDANSETRON HCL [Concomitant]
     Active Substance: ONDANSETRON HYDROCHLORIDE
     Indication: NAUSEA
     Dosage: UNK, AS NEEDED (TAKE 1 OR 2 TABLET) (EVERY 8 HRS)
     Route: 048
  4. LANTUS [Concomitant]
     Active Substance: INSULIN GLARGINE
     Dosage: 30 IU, 1X/DAY
     Route: 058
  5. ASPIRIN [ACETYLSALICYLIC ACID] [Concomitant]
     Active Substance: ASPIRIN
     Dosage: 81 MG, DAILY
     Route: 048
  6. METOPROLOL SUCCINATE. [Concomitant]
     Active Substance: METOPROLOL SUCCINATE
     Dosage: 100 MG, DAILY
     Route: 048
  7. VITAMIN D3 [Concomitant]
     Active Substance: CHOLECALCIFEROL
     Dosage: 1000 IU, DAILY
     Route: 048
  8. WARFARIN [Concomitant]
     Active Substance: WARFARIN
     Dosage: 2.5 MG, UNK (SUN, WED, FRI ) (5 MG ALL OTHER DAYS OR DIRECTED)
     Route: 048
  9. WARFARIN [Concomitant]
     Active Substance: WARFARIN
     Dosage: 5 MG, UNK (OTHER DAYS EXCEPT SUN, WED, FRI, OR DIRECTED)
  10. FENOFIBRATE MICRO [Concomitant]
     Active Substance: FENOFIBRATE
     Dosage: 200 MG, DAILY (WITH FOOD)
     Route: 048
  11. PAROXETINE. [Concomitant]
     Active Substance: PAROXETINE
     Dosage: 20 MG, DAILY
     Route: 048
  12. TRIAMCINOLONE ACETONIDE. [Concomitant]
     Active Substance: TRIAMCINOLONE ACETONIDE
     Dosage: 0.1 %, UNK
     Route: 061
  13. ALCOHOL PREP PADS [Concomitant]
     Active Substance: ISOPROPYL ALCOHOL
     Dosage: UNK, AS NEEDED
  14. FISH OIL [Concomitant]
     Active Substance: FISH OIL
     Dosage: 1 DF, DAILY
  15. TYLENOL [Concomitant]
     Active Substance: ACETAMINOPHEN
     Dosage: 650 MG, AS NEEDED (TAKE 2 TABLETS EVERY 6 HOURS)
     Route: 048
  16. ATORVASTATIN [Concomitant]
     Active Substance: ATORVASTATIN
     Dosage: 80 MG, DAILY
     Route: 048
  17. NOVOLIN N [Concomitant]
     Active Substance: INSULIN HUMAN
     Dosage: UNK (100 IU/ML)
     Route: 058
  18. VFEND [Suspect]
     Active Substance: VORICONAZOLE
     Indication: ASPERGILLUS INFECTION
     Dosage: 200 MG, DAILY (60 DAY SUPPLY)
     Route: 048

REACTIONS (2)
  - Off label use [Unknown]
  - Myocardial infarction [Unknown]

NARRATIVE: CASE EVENT DATE: 201902
